FAERS Safety Report 8181491-X (Version None)
Quarter: 2012Q1

REPORT INFORMATION
  Report Type: 
  Country: None (occurrence: None)
  Receive Date: 20120302
  Receipt Date: 20120224
  Transmission Date: 20120608
  Serious: Yes (Life-Threatening, Hospitalization)
  Sender: FDA-Public Use
  Company Number: JP-FRI-1000028744

PATIENT
  Age: 80 Year
  Sex: Female

DRUGS (9)
  1. MEMANTINE [Suspect]
     Indication: DEMENTIA
     Dosage: 5 MG
     Route: 048
     Dates: start: 20120124, end: 20120130
  2. ARICEPT [Concomitant]
     Dosage: 10 MG
  3. NORVASC [Concomitant]
  4. OMEPRAZOLE [Concomitant]
  5. ARICEPT [Concomitant]
     Dosage: 5 MG
  6. LOXONIN [Concomitant]
  7. MUCOSTA [Concomitant]
  8. MEMANTINE [Suspect]
     Dosage: 10 MG
     Route: 048
     Dates: start: 20120131, end: 20120101
  9. SIMVASTATIN [Concomitant]

REACTIONS (1)
  - GASTROINTESTINAL PERFORATION [None]
